FAERS Safety Report 5517552-0 (Version None)
Quarter: 2007Q4

REPORT INFORMATION
  Report Type: 
  Country: None (occurrence: None)
  Receive Date: 20071114
  Receipt Date: 20071024
  Transmission Date: 20080405
  Serious: Yes (Other)
  Sender: FDA-Public Use
  Company Number: US-PFIZER INC-2007089664

PATIENT
  Sex: Male
  Weight: 65.8 kg

DRUGS (5)
  1. VIAGRA [Suspect]
     Indication: BLOOD PRESSURE
  2. CLONIDINE [Concomitant]
  3. KLONOPIN [Concomitant]
  4. ACETYLSALICYLIC ACID SRT [Concomitant]
  5. IMITREX [Concomitant]

REACTIONS (2)
  - HEADACHE [None]
  - MIGRAINE [None]
